FAERS Safety Report 8116460-9 (Version None)
Quarter: 2012Q1

REPORT INFORMATION
  Report Type: 
  Country: None (occurrence: None)
  Receive Date: 20120206
  Receipt Date: 20120130
  Transmission Date: 20120608
  Serious: Yes (Death, Other)
  Sender: FDA-Public Use
  Company Number: US-B.I. PHARMACEUTICALS,INC./RIDGEFIELD-2012-EU-00649GD

PATIENT
  Age: 4 Year
  Sex: Male

DRUGS (2)
  1. WARFARIN SODIUM [Suspect]
     Indication: ANTICOAGULANT THERAPY
  2. DIPYRIDAMOLE [Suspect]
     Indication: ANTIPLATELET THERAPY
     Dates: start: 20101101

REACTIONS (3)
  - WITHDRAWAL OF LIFE SUPPORT [None]
  - HAEMORRHAGE [None]
  - ENDOTRACHEAL INTUBATION COMPLICATION [None]
